FAERS Safety Report 9619843 (Version 2)
Quarter: 2013Q4

REPORT INFORMATION
  Report Type: Report from Study
  Country: ES (occurrence: DE)
  Receive Date: 20131014
  Receipt Date: 20131119
  Transmission Date: 20140711
  Serious: Yes (Other)
  Sender: FDA-Public Use
  Company Number: DE-FRI-1000049967

PATIENT
  Sex: Male
  Weight: 97 kg

DRUGS (1)
  1. ACLIDINIUM [Suspect]

REACTIONS (2)
  - Bronchial carcinoma [Unknown]
  - General physical health deterioration [Unknown]
